FAERS Safety Report 13596800 (Version 1)
Quarter: 2017Q2

REPORT INFORMATION
  Report Type: Spontaneous
  Country: GB (occurrence: GB)
  Receive Date: 20170531
  Receipt Date: 20170531
  Transmission Date: 20170830
  Serious: Yes (Hospitalization, Other)
  Sender: FDA-Public Use
  Company Number: GB-AUROBINDO-AUR-APL-2017-34433

PATIENT
  Age: 19 Year
  Sex: Female

DRUGS (7)
  1. PROPRANOLOL HYDROCHLORIDE. [Concomitant]
     Active Substance: PROPRANOLOL HYDROCHLORIDE
     Indication: PRODUCT USED FOR UNKNOWN INDICATION
     Dosage: BUT NOT FOR THE LAST 3 WEEKS.
     Route: 065
  2. QUETIAPINE. [Suspect]
     Active Substance: QUETIAPINE
     Dosage: 150 MG, TWO TIMES A DAY
     Route: 048
     Dates: start: 20170505, end: 20170506
  3. PARACETAMOL [Concomitant]
     Active Substance: ACETAMINOPHEN
     Indication: PRODUCT USED FOR UNKNOWN INDICATION
     Dosage: 1 G, FOUR TIMES A DAY.
     Route: 048
  4. ZUCLOPENTHIXOL DECANOATE [Concomitant]
     Active Substance: ZUCLOPENTHIXOL DECANOATE
     Indication: PRODUCT USED FOR UNKNOWN INDICATION
     Dosage: 100 MG, UNK
     Route: 030
     Dates: start: 20170426
  5. ZOPICLONE [Concomitant]
     Active Substance: ZOPICLONE
     Dosage: 3.75 MG, AT NIGHT.
     Route: 065
  6. LORAZEPAM. [Concomitant]
     Active Substance: LORAZEPAM
     Indication: PRODUCT USED FOR UNKNOWN INDICATION
     Dosage: 1 MG,EVERY FOUR HOURS.
     Route: 065
  7. QUETIAPINE. [Suspect]
     Active Substance: QUETIAPINE
     Indication: DEPRESSION
     Dosage: 25 MG, TWO TIMES A DAY
     Route: 048
     Dates: start: 20170425

REACTIONS (7)
  - Urinary retention [Recovering/Resolving]
  - Somnolence [Recovering/Resolving]
  - Pyrexia [Recovering/Resolving]
  - Tachycardia [Recovering/Resolving]
  - Drooling [Recovering/Resolving]
  - Neuroleptic malignant syndrome [Recovering/Resolving]
  - Muscle rigidity [Recovering/Resolving]

NARRATIVE: CASE EVENT DATE: 20170504
